FAERS Safety Report 10932817 (Version 1)
Quarter: 2015Q1

REPORT INFORMATION
  Report Type: Spontaneous
  Country: US (occurrence: None)
  Receive Date: 20150319
  Receipt Date: 20150319
  Transmission Date: 20150721
  Serious: Yes (Life-Threatening, Hospitalization, Disabling, Other)
  Sender: FDA-Public Use
  Company Number: None

PATIENT
  Age: 18 Year
  Sex: Male
  Weight: 80.29 kg

DRUGS (1)
  1. CLARAVIS [Suspect]
     Active Substance: ISOTRETINOIN
     Indication: ACNE
     Dosage: BY MOUTH
     Dates: start: 20150120, end: 20150219

REACTIONS (11)
  - Dyspnoea [None]
  - Headache [None]
  - Fatigue [None]
  - Chills [None]
  - Arthralgia [None]
  - Urticaria [None]
  - Anaphylactic reaction [None]
  - Tinnitus [None]
  - Dizziness [None]
  - Tremor [None]
  - Gait disturbance [None]

NARRATIVE: CASE EVENT DATE: 20150219
